FAERS Safety Report 13351133 (Version 3)
Quarter: 2017Q2

REPORT INFORMATION
  Report Type: Spontaneous
  Country: BE (occurrence: BE)
  Receive Date: 20170320
  Receipt Date: 20170517
  Transmission Date: 20170830
  Serious: Yes (Disabling, Other)
  Sender: FDA-Public Use
  Company Number: BE-009507513-1703BEL006595

PATIENT
  Age: 19 Year
  Sex: Female

DRUGS (2)
  1. IMPLANON [Suspect]
     Active Substance: ETONOGESTREL
     Indication: ACNE
     Dosage: 1 DF, UNK
     Route: 059
     Dates: start: 20160818, end: 20170310
  2. IMPLANON [Suspect]
     Active Substance: ETONOGESTREL
     Indication: CONTRACEPTIVE IMPLANT

REACTIONS (22)
  - Vomiting [Unknown]
  - Loss of personal independence in daily activities [Unknown]
  - Affective disorder [Unknown]
  - Mental disorder [Not Recovered/Not Resolved]
  - Implant site pain [Recovered/Resolved]
  - Dyspepsia [Unknown]
  - Scar [Unknown]
  - Nausea [Recovered/Resolved]
  - Dizziness [Recovered/Resolved]
  - Abdominal pain [Recovered/Resolved]
  - Vaginal haemorrhage [Recovered/Resolved]
  - Vaginal infection [Recovered/Resolved]
  - Cystitis [Unknown]
  - Acne [Unknown]
  - Psychiatric symptom [Unknown]
  - Seizure [Unknown]
  - Off label use [Unknown]
  - Headache [Unknown]
  - Device deployment issue [Recovered/Resolved]
  - Constipation [Recovered/Resolved]
  - Device difficult to use [Recovered/Resolved]
  - Diarrhoea [Unknown]

NARRATIVE: CASE EVENT DATE: 20160818
